FAERS Safety Report 10436290 (Version 4)
Quarter: 2015Q1

REPORT INFORMATION
  Report Type: Spontaneous
  Country: JP (occurrence: JP)
  Receive Date: 20140908
  Receipt Date: 20150209
  Transmission Date: 20150720
  Serious: Yes (Life-Threatening, Hospitalization, Other)
  Sender: FDA-Public Use
  Company Number: JP-SA-2014SA103687

PATIENT
  Age: 49 Year
  Sex: Male

DRUGS (29)
  1. ELPLAT [Suspect]
     Active Substance: OXALIPLATIN
     Indication: PANCREATIC CARCINOMA
     Route: 041
     Dates: start: 20140414, end: 20140414
  2. 5-FU [Suspect]
     Active Substance: FLUOROURACIL
     Indication: PANCREATIC CARCINOMA
     Route: 041
     Dates: start: 20140318, end: 20140318
  3. 5-FU [Suspect]
     Active Substance: FLUOROURACIL
     Indication: PANCREATIC CARCINOMA
     Route: 041
     Dates: start: 20140414, end: 20140414
  4. DEXAMETHASONE SODIUM PHOSPHATE. [Concomitant]
     Active Substance: DEXAMETHASONE SODIUM PHOSPHATE
     Dates: start: 20140318, end: 20140414
  5. EMEND [Concomitant]
     Active Substance: APREPITANT
     Dates: start: 20140318, end: 20140416
  6. OXYCODONE HYDROCHLORIDE. [Concomitant]
     Active Substance: OXYCODONE HYDROCHLORIDE
     Dates: start: 20140318
  7. MIYA-BM [Concomitant]
     Active Substance: CLOSTRIDIUM BUTYRICUM SPORES STRAIN M-55
     Dates: start: 20140320, end: 20140329
  8. OPIUM TINCTURE [Concomitant]
     Active Substance: OPIUM TINCTURE
     Dosage: SOLUTION EXCEPT SYRUP
     Dates: start: 20140323, end: 20140329
  9. HACHIAZULE [Concomitant]
     Dosage: MOUTHWASH
     Dates: start: 20140402
  10. UNASYN [Concomitant]
     Active Substance: AMPICILLIN SODIUM\SULBACTAM SODIUM
     Dates: start: 20140404, end: 20140412
  11. CALCIUM LEVOFOLINATE [Suspect]
     Active Substance: LEVOLEUCOVORIN CALCIUM
     Indication: PANCREATIC CARCINOMA
     Route: 041
     Dates: start: 20140414, end: 20140414
  12. IRINOTECAN HYDROCHLORIDE. [Suspect]
     Active Substance: IRINOTECAN HYDROCHLORIDE
     Indication: PANCREATIC CARCINOMA
     Route: 041
     Dates: start: 20140318, end: 20140318
  13. MYSLEE [Concomitant]
     Active Substance: ZOLPIDEM TARTRATE
     Dates: start: 20140318, end: 20140327
  14. DECADRON [Concomitant]
     Active Substance: DEXAMETHASONE
     Dates: start: 20140319, end: 20140414
  15. DEXALTIN [Concomitant]
     Active Substance: DEXAMETHASONE
     Dates: start: 20140402
  16. HEPARIN [Concomitant]
     Active Substance: HEPARIN SODIUM
     Dates: start: 20140428, end: 20140501
  17. IRINOTECAN HYDROCHLORIDE. [Suspect]
     Active Substance: IRINOTECAN HYDROCHLORIDE
     Indication: PANCREATIC CARCINOMA
     Route: 041
     Dates: start: 20140414, end: 20140414
  18. 5-FU [Suspect]
     Active Substance: FLUOROURACIL
     Indication: PANCREATIC CARCINOMA
     Route: 040
     Dates: start: 20140318, end: 20140318
  19. ALOXI [Concomitant]
     Active Substance: PALONOSETRON HYDROCHLORIDE
     Dates: start: 20140318, end: 20140414
  20. OXYCONTIN [Concomitant]
     Active Substance: OXYCODONE HYDROCHLORIDE
     Dates: start: 20140318
  21. MAGLAX [Concomitant]
     Active Substance: MAGNESIUM OXIDE
     Dates: start: 20140318, end: 20140319
  22. CRAVIT [Concomitant]
     Active Substance: LEVOFLOXACIN
     Dates: start: 20140325, end: 20140326
  23. ELPLAT [Suspect]
     Active Substance: OXALIPLATIN
     Indication: PANCREATIC CARCINOMA
     Route: 041
     Dates: start: 20140318, end: 20140318
  24. NEXIUM [Concomitant]
     Active Substance: ESOMEPRAZOLE MAGNESIUM
     Dates: start: 20140318
  25. MEROPEN [Concomitant]
     Active Substance: MEROPENEM
     Dates: start: 20140428, end: 20140430
  26. LOXOPROFEN [Concomitant]
     Active Substance: LOXOPROFEN
     Dates: start: 20140318
  27. CALCIUM LEVOFOLINATE [Suspect]
     Active Substance: LEVOLEUCOVORIN CALCIUM
     Indication: PANCREATIC CARCINOMA
     Route: 041
     Dates: start: 20140318, end: 20140318
  28. NOVAMIN [Concomitant]
     Active Substance: PROCHLORPERAZINE MALEATE
     Dates: start: 20140319, end: 20140325
  29. LENDORMIN [Concomitant]
     Active Substance: BROTIZOLAM
     Dates: start: 20140328

REACTIONS (7)
  - Decreased appetite [Unknown]
  - Thrombophlebitis [Recovering/Resolving]
  - Vomiting [Unknown]
  - Pulmonary embolism [Recovering/Resolving]
  - Pleural infection [Recovered/Resolved]
  - Febrile neutropenia [Recovered/Resolved]
  - Diarrhoea [Recovered/Resolved]

NARRATIVE: CASE EVENT DATE: 20140320
